FAERS Safety Report 18766613 (Version 2)
Quarter: 2021Q3

REPORT INFORMATION
  Report Type: Spontaneous
  Country: US (occurrence: US)
  Receive Date: 20210121
  Receipt Date: 20210719
  Transmission Date: 20211014
  Serious: Yes (Disabling)
  Sender: FDA-Public Use
  Company Number: US-SA-2021SA014688

PATIENT
  Age: 58 Year
  Sex: Female

DRUGS (1)
  1. TERIFLUNOMIDE. [Suspect]
     Active Substance: TERIFLUNOMIDE
     Indication: MULTIPLE SCLEROSIS
     Dosage: 7 MG, QD
     Route: 048
     Dates: start: 20180825

REACTIONS (8)
  - Fall [Unknown]
  - Diarrhoea [Unknown]
  - Depression [Unknown]
  - Loss of personal independence in daily activities [Unknown]
  - Temperature intolerance [Unknown]
  - Pruritus [Unknown]
  - Sensory loss [Unknown]
  - Fatigue [Unknown]

NARRATIVE: CASE EVENT DATE: 2018
